FAERS Safety Report 15009175 (Version 4)
Quarter: 2018Q4

REPORT INFORMATION
  Report Type: Spontaneous
  Country: JP (occurrence: JP)
  Receive Date: 20180614
  Receipt Date: 20181023
  Transmission Date: 20190204
  Serious: Yes (Other)
  Sender: FDA-Public Use
  Company Number: JP-UCBSA-2018025659

PATIENT
  Age: 30 Year
  Sex: Female

DRUGS (4)
  1. TEGRETOL [Suspect]
     Active Substance: CARBAMAZEPINE
     Indication: PRODUCT USED FOR UNKNOWN INDICATION
     Dosage: 200 MG DAILY DOSE
     Route: 048
     Dates: start: 20180217, end: 20180413
  2. E KEPPRA [Suspect]
     Active Substance: LEVETIRACETAM
     Dosage: 1250MG DAILY DOSE
     Route: 048
     Dates: start: 20180414, end: 20180509
  3. E KEPPRA [Suspect]
     Active Substance: LEVETIRACETAM
     Indication: EPILEPSY
     Dosage: 1000 MG DAILY DOSE
     Route: 048
     Dates: start: 20180217, end: 20180413
  4. TEGRETOL [Suspect]
     Active Substance: CARBAMAZEPINE
     Dosage: 150 MG DAILY DOSE
     Route: 048
     Dates: start: 20180414, end: 20180509

REACTIONS (2)
  - Neutropenia [Recovered/Resolved]
  - Leukopenia [Recovering/Resolving]

NARRATIVE: CASE EVENT DATE: 20180414
